FAERS Safety Report 10839670 (Version 1)
Quarter: 2015Q1

REPORT INFORMATION
  Report Type: Spontaneous
  Country: US (occurrence: US)
  Receive Date: 20150220
  Receipt Date: 20150220
  Transmission Date: 20150721
  Serious: No
  Sender: FDA-Public Use
  Company Number: US-ABBVIE-14P-163-1245141-00

PATIENT
  Sex: Female
  Weight: 84.44 kg

DRUGS (6)
  1. IRON [Concomitant]
     Active Substance: IRON
     Indication: ANAEMIA
  2. ASACOL [Concomitant]
     Active Substance: MESALAMINE
     Indication: COLITIS ULCERATIVE
  3. DONNATAL [Concomitant]
     Active Substance: ATROPINE SULFATE\HYOSCYAMINE SULFATE\PHENOBARBITAL\SCOPOLAMINE HYDROBROMIDE
     Indication: IRRITABLE BOWEL SYNDROME
  4. HUMIRA [Suspect]
     Active Substance: ADALIMUMAB
     Indication: COLITIS ULCERATIVE
     Dates: start: 20140415, end: 20140415
  5. HUMIRA [Suspect]
     Active Substance: ADALIMUMAB
     Dates: start: 20140506
  6. HUMIRA [Suspect]
     Active Substance: ADALIMUMAB
     Dates: start: 20140429, end: 20140429

REACTIONS (1)
  - Immunodeficiency [Not Recovered/Not Resolved]
